FAERS Safety Report 20472081 (Version 2)
Quarter: 2022Q1

REPORT INFORMATION
  Report Type: Report from Study
  Country: FR (occurrence: FR)
  Receive Date: 20220214
  Receipt Date: 20220224
  Transmission Date: 20220423
  Serious: Yes (Hospitalization)
  Sender: FDA-Public Use
  Company Number: FR-JNJFOC-20220212122

PATIENT
  Age: 18 Year
  Sex: Female
  Weight: 69 kg

DRUGS (8)
  1. GUSELKUMAB [Suspect]
     Active Substance: GUSELKUMAB
     Indication: Colitis ulcerative
     Route: 058
     Dates: start: 20210628
  2. GUSELKUMAB [Suspect]
     Active Substance: GUSELKUMAB
  3. LEVOFLOXACIN [Concomitant]
     Active Substance: LEVOFLOXACIN
  4. LOPERAMIDE [Concomitant]
     Active Substance: LOPERAMIDE
  5. TRIMEBUTINE [Concomitant]
     Active Substance: TRIMEBUTINE
  6. PHLOROGLUCINOL [Concomitant]
     Active Substance: PHLOROGLUCINOL
  7. ACETAMINOPHEN [Concomitant]
     Active Substance: ACETAMINOPHEN
  8. NEFOPAM [Concomitant]
     Active Substance: NEFOPAM

REACTIONS (1)
  - Colitis ulcerative [Recovered/Resolved]

NARRATIVE: CASE EVENT DATE: 20220203
